FAERS Safety Report 4289565-0 (Version None)
Quarter: 2004Q1

REPORT INFORMATION
  Report Type: 
  Country: None (occurrence: None)
  Receive Date: 20040203
  Receipt Date: 20030328
  Transmission Date: 20041129
  Serious: Yes (Other)
  Sender: FDA-Public Use
  Company Number: 200315591BWH

PATIENT
  Age: 52 Year
  Sex: Male
  Weight: 88.4514 kg

DRUGS (1)
  1. AVELOX [Suspect]
     Indication: SINUSITIS
     Dosage: 400 MG, TOTAL DAILY, ORAL
     Route: 048
     Dates: start: 20030316

REACTIONS (5)
  - GINGIVAL PAIN [None]
  - HYPERSENSITIVITY [None]
  - PARAESTHESIA ORAL [None]
  - URTICARIA GENERALISED [None]
  - WHEEZING [None]
